FAERS Safety Report 10258656 (Version 1)
Quarter: 2014Q2

REPORT INFORMATION
  Report Type: Spontaneous
  Country: US (occurrence: None)
  Receive Date: 20140623
  Receipt Date: 20140623
  Transmission Date: 20141212
  Serious: Yes (Disabling)
  Sender: FDA-Public Use
  Company Number: None

PATIENT
  Age: 44 Year
  Sex: Female
  Weight: 65.77 kg

DRUGS (1)
  1. LEVOFLOXACIN [Suspect]
     Indication: SINUSITIS
     Route: 048

REACTIONS (6)
  - Gait disturbance [None]
  - Joint crepitation [None]
  - Mental impairment [None]
  - Disturbance in attention [None]
  - Urticaria [None]
  - Skin burning sensation [None]
